FAERS Safety Report 22615978 (Version 1)
Quarter: 2023Q2

REPORT INFORMATION
  Report Type: Report from Study
  Country: DE (occurrence: DE)
  Receive Date: 20230619
  Receipt Date: 20230619
  Transmission Date: 20230721
  Serious: Yes (Death, Life-Threatening, Hospitalization, Other)
  Sender: FDA-Public Use
  Company Number: None

PATIENT
  Age: 81 Year
  Sex: Female

DRUGS (77)
  1. DEXTROSE [Suspect]
     Active Substance: DEXTROSE\DEXTROSE MONOHYDRATE
     Indication: Product used for unknown indication
     Dosage: 100 ML (MILLILITRE), DOSAGE TEXT: FORM: INFUSION, STRENGTH: 40%, 20%. FOR SUBSTITUTION
     Route: 042
     Dates: start: 20050206, end: 20050218
  2. HETASTARCH [Suspect]
     Active Substance: HETASTARCH
     Indication: Product used for unknown indication
     Dosage: DOSAGE TEXT: DOSE: 51-2
     Route: 042
     Dates: start: 20050213, end: 20050213
  3. HETASTARCH [Suspect]
     Active Substance: HETASTARCH
     Dosage: DOSAGE TEXT: DOSE: 51
     Route: 042
     Dates: start: 20050215, end: 20050215
  4. HETASTARCH [Suspect]
     Active Substance: HETASTARCH
     Dosage: DSOAGE TEXT: DOSE: 5-0
     Route: 042
     Dates: start: 20050207, end: 20050209
  5. HETASTARCH [Suspect]
     Active Substance: HETASTARCH
     Dosage: DOSAGE TEXT: FORM: INFUSION, DOSE: 130/0
     Route: 042
     Dates: start: 20050201, end: 20050203
  6. HETASTARCH [Suspect]
     Active Substance: HETASTARCH
     Dosage: UNK
     Route: 042
     Dates: start: 20050226, end: 20050228
  7. HETASTARCH [Suspect]
     Active Substance: HETASTARCH
     Dosage: UNK
     Route: 042
     Dates: start: 20050221, end: 20050223
  8. HETASTARCH [Suspect]
     Active Substance: HETASTARCH
     Dosage: UNK
     Route: 042
     Dates: start: 20050302
  9. VANCOMYCIN [Suspect]
     Active Substance: VANCOMYCIN
     Indication: Product used for unknown indication
     Dosage: UNK
     Route: 042
     Dates: start: 20050302
  10. VANCOMYCIN [Suspect]
     Active Substance: VANCOMYCIN
     Dosage: 0.5 G (GRAM) ONCE DAILY
     Route: 042
     Dates: start: 20050209, end: 20050221
  11. VANCOMYCIN [Suspect]
     Active Substance: VANCOMYCIN
     Dosage: UNK
     Route: 065
     Dates: start: 20050131
  12. VANCOMYCIN [Suspect]
     Active Substance: VANCOMYCIN
     Dosage: 1 G (GRAM) ONCE DAILY AND DOSAGE TEXT: INDICATION: COLONISATION
     Route: 042
     Dates: start: 20050206
  13. VANCOMYCIN [Suspect]
     Active Substance: VANCOMYCIN
     Dosage: UNK
     Route: 042
     Dates: start: 20050224, end: 20050224
  14. CALCIUM [Suspect]
     Active Substance: CALCIUM
     Dosage: UNK
     Route: 065
     Dates: start: 20050204, end: 20050216
  15. CALCIUM [Suspect]
     Active Substance: CALCIUM
     Dosage: UNK
     Route: 042
     Dates: start: 20050201, end: 20050215
  16. ENOXAPARIN SODIUM [Suspect]
     Active Substance: ENOXAPARIN SODIUM
     Indication: Thrombosis
     Dosage: 40 MILLIGRAM (MG) AND ONCE DAILY
     Route: 058
     Dates: start: 20050217, end: 20050303
  17. ERYTHROMYCIN [Suspect]
     Active Substance: ERYTHROMYCIN
     Indication: Product used for unknown indication
     Dosage: 300 MG (MILLIGRAM) ONCE DAILY
     Route: 042
     Dates: start: 20050205, end: 20050207
  18. ERYTHROMYCIN [Suspect]
     Active Substance: ERYTHROMYCIN
     Dosage: 400 MG (MILLIGRAM) ONCE DAILY
     Route: 042
     Dates: start: 20050214, end: 20050219
  19. NOVALGIN (METAMIZOLE SODIUM) [Suspect]
     Active Substance: METAMIZOLE SODIUM
     Indication: Pain
     Dosage: 5 G (GRAM) ONCE DAILY
     Route: 042
     Dates: start: 20050217, end: 20050226
  20. NOVALGIN (METAMIZOLE SODIUM) [Suspect]
     Active Substance: METAMIZOLE SODIUM
     Dosage: 1 G (GRAM) ONCE DAILY
     Route: 042
     Dates: start: 20050302, end: 20050302
  21. NOREPINEPHRINE HYDROCHLORIDE, (+/-)- [Suspect]
     Active Substance: NOREPINEPHRINE HYDROCHLORIDE, (+/-)-
     Indication: Product used for unknown indication
     Dosage: UNK
     Route: 042
     Dates: start: 20050126, end: 20050203
  22. NOREPINEPHRINE HYDROCHLORIDE, (+/-)- [Suspect]
     Active Substance: NOREPINEPHRINE HYDROCHLORIDE, (+/-)-
     Dosage: UNK
     Route: 042
     Dates: start: 20050224, end: 20050303
  23. NOREPINEPHRINE HYDROCHLORIDE, (+/-)- [Suspect]
     Active Substance: NOREPINEPHRINE HYDROCHLORIDE, (+/-)-
     Dosage: UNK
     Route: 042
     Dates: start: 20050208, end: 20050217
  24. FUROSEMIDE [Suspect]
     Active Substance: FUROSEMIDE
     Indication: Polyuria
     Dosage: DOSAGE TEXT: STRENGTH: 125 MG, DOSE: 4 X 10MG
     Route: 042
     Dates: start: 20050224, end: 20050227
  25. FUROSEMIDE [Suspect]
     Active Substance: FUROSEMIDE
     Dosage: DOSAGE TEXT: STRENGTH: 125 MG, DOSE: 4X20MG
     Route: 042
     Dates: start: 20050204, end: 20050216
  26. ASPIRIN [Suspect]
     Active Substance: ASPIRIN
     Indication: Thrombosis
     Dosage: 1500 MG (MILLIGRAM) ONCE DAILY
     Route: 042
     Dates: start: 20050128, end: 20050206
  27. ASPIRIN [Suspect]
     Active Substance: ASPIRIN
     Dosage: 500 MG (MILLIGRAM) ONCE DAILY, DOSAGE TEXT: RECEIVED ON 8-FEB, 10-FEB, 12-FEB, 14-FEB, 16- FEB-2005
     Route: 042
     Dates: start: 20050208
  28. ALBUMIN HUMAN [Suspect]
     Active Substance: ALBUMIN HUMAN
     Indication: Product used for unknown indication
     Dosage: DOSAGE TEXT: DOSE: 2X100 ML
     Route: 042
     Dates: start: 20050208, end: 20050210
  29. ALBUMIN HUMAN [Suspect]
     Active Substance: ALBUMIN HUMAN
     Dosage: DOSAGE TEXT: DOSE: 3X100 ML. INDICATION REPORTED AS SUBSTITUTION
     Route: 042
     Dates: start: 20050203, end: 20050205
  30. SULBACTAM SODIUM [Suspect]
     Active Substance: SULBACTAM SODIUM
     Indication: Product used for unknown indication
     Dosage: 1.5 G (GRAM) ONCE DAILY
     Route: 042
     Dates: start: 20050127, end: 20050215
  31. MIDAZOLAM [Suspect]
     Active Substance: MIDAZOLAM
     Indication: Sedation
     Dosage: 45 MG (MILLIGRAM)
     Route: 042
     Dates: start: 20050201, end: 20050213
  32. HEPARIN SODIUM [Suspect]
     Active Substance: HEPARIN SODIUM
     Indication: Thrombosis
     Dosage: DOSAGE TEXT: STRENGTH: 10000IU
     Route: 042
     Dates: start: 20050128, end: 20050216
  33. AMINO ACIDS\CARBOHYDRATES\MINERALS\SOYBEAN OIL\VITAMINS [Suspect]
     Active Substance: AMINO ACIDS\CARBOHYDRATES\MINERALS\SOYBEAN OIL\VITAMINS
     Indication: Product used for unknown indication
     Dosage: 250 ML (MILLILITRE), DOSAGE TEXT: FOR EXTERNAL NUTRITION
     Route: 048
     Dates: start: 20050205, end: 20050224
  34. METOCLOPRAMIDE [Suspect]
     Active Substance: METOCLOPRAMIDE
     Indication: Nausea
     Dosage: UNK
     Route: 042
     Dates: start: 20050216, end: 20050219
  35. METOCLOPRAMIDE [Suspect]
     Active Substance: METOCLOPRAMIDE
     Dosage: DOSAGE TEXT: DOSE: 3X1 AMP
     Route: 042
     Dates: start: 20050205, end: 20050208
  36. CANRENOATE POTASSIUM [Suspect]
     Active Substance: CANRENOATE POTASSIUM
     Indication: Oedema
     Dosage: 200 MG (MILLIGRAM) ONCE DAILY
     Route: 042
     Dates: start: 20050206, end: 20050303
  37. PIRITRAMIDE [Suspect]
     Active Substance: PIRITRAMIDE
     Indication: Pain
     Dosage: DOSAGE TEXT: DOSE: 2X45 30 MG 40 MG
     Route: 042
     Dates: start: 20050214, end: 20050216
  38. DOBUTAMINE [Suspect]
     Active Substance: DOBUTAMINE HYDROCHLORIDE
     Indication: Product used for unknown indication
     Dosage: DOSAGE TEXT: INDICATION REPORTED AS CIRCULATORY REGULATION
     Route: 042
     Dates: start: 20050126, end: 20050203
  39. DOBUTAMINE [Suspect]
     Active Substance: DOBUTAMINE HYDROCHLORIDE
     Dosage: UNK
     Route: 042
     Dates: start: 20050209, end: 20050217
  40. FLUIMUCIL [Suspect]
     Active Substance: ACETYLCYSTEINE
     Indication: Product used for unknown indication
     Dosage: AT AN UNSPECIFIED DOSE AND ONCE DAILY
     Route: 042
     Dates: start: 20050126, end: 20050302
  41. DIFLUCAN [Suspect]
     Active Substance: FLUCONAZOLE
     Indication: Fungal infection
     Dosage: UNK
     Route: 042
     Dates: start: 20050131, end: 20050210
  42. CALCIUM [Suspect]
     Active Substance: CALCIUM
     Indication: Product used for unknown indication
     Dosage: UNK
     Route: 042
     Dates: start: 20050214, end: 20050215
  43. CALCIUM [Suspect]
     Active Substance: CALCIUM
     Dosage: 20 ML (MILLILITRE) ONCE DAILY, DOSAGE TEXT: INDICATION: SUBSTITUTION
     Route: 042
     Dates: start: 20050201, end: 20050203
  44. CALCIUM [Suspect]
     Active Substance: CALCIUM
     Dosage: UNK
     Route: 042
     Dates: start: 20050303, end: 20050303
  45. CASPOFUNGIN [Suspect]
     Active Substance: CASPOFUNGIN
     Indication: Candida infection
     Dosage: 70 MG (MILLIGRAM) ONCE DAILY
     Route: 042
     Dates: start: 20050209, end: 20050215
  46. CASPOFUNGIN [Suspect]
     Active Substance: CASPOFUNGIN
     Dosage: 50 MG (MILLIGRAM) ONCE DAILY
     Route: 042
     Dates: start: 20050224, end: 20050303
  47. ENOXAPARIN [Suspect]
     Active Substance: ENOXAPARIN
     Dosage: UNK
     Route: 065
     Dates: start: 20050126
  48. OMEPRAZOLE [Suspect]
     Active Substance: OMEPRAZOLE
     Indication: Prophylaxis
     Dosage: 40 MG (MILLGIRAM) ONCE DAILY
     Route: 042
     Dates: start: 20050127, end: 20050303
  49. PERIAMIN X [Suspect]
     Active Substance: AMINO ACIDS\ELECTROLYTES NOS\XYLITOL
     Indication: Product used for unknown indication
     Dosage: UNK
     Route: 042
     Dates: start: 20050224, end: 20050224
  50. INSULIN HUMAN [Suspect]
     Active Substance: INSULIN HUMAN
     Indication: Blood glucose abnormal
     Dosage: DOSAGE TEXT: STRENGTH: 50IU
     Route: 042
     Dates: start: 20050126, end: 20050303
  51. SUFENTANIL [Suspect]
     Active Substance: SUFENTANIL
     Indication: Analgesic therapy
     Dosage: UNK
     Route: 042
     Dates: start: 20050203, end: 20050213
  52. PIPERACILLIN [Suspect]
     Active Substance: PIPERACILLIN
     Indication: Product used for unknown indication
     Dosage: 12 G (GRAM) ONCE DAILY
     Route: 042
     Dates: start: 20050127, end: 20050215
  53. Beloc [Concomitant]
     Indication: Cardiac failure
     Dosage: UNK
     Route: 042
     Dates: start: 20050228, end: 20050303
  54. Beloc [Concomitant]
     Dosage: UNK
     Route: 042
     Dates: start: 20050127
  55. CYTOBION [Concomitant]
     Dosage: 1000 UG (MICROGRAM)
     Route: 042
     Dates: start: 20050225, end: 20050227
  56. CLONIDINE [Concomitant]
     Active Substance: CLONIDINE
     Dosage: UNK
     Route: 065
     Dates: start: 20050131
  57. POTASSIUM CHLORIDE [Concomitant]
     Active Substance: POTASSIUM CHLORIDE
     Indication: Hypokalaemia
     Dosage: DOSAGE TEXT: FORM: INFUSION, DOSE: 50MVAL
     Route: 042
     Dates: start: 20050301, end: 20050303
  58. POTASSIUM CHLORIDE [Concomitant]
     Active Substance: POTASSIUM CHLORIDE
     Dosage: UNK
     Route: 065
  59. HYDROCORTISONE [Concomitant]
     Active Substance: HYDROCORTISONE
     Dosage: 60 MG (MILLIGRAM)
     Route: 042
     Dates: start: 20050202, end: 20050206
  60. CLINOMEL [Concomitant]
     Active Substance: AMINO ACIDS\DEXTROSE\ELECTROLYTES NOS\SOYBEAN OIL
     Dosage: 1000 ML (MILLILITRE), DOASGE TEXT: FORM: INFUSION
     Route: 042
     Dates: start: 20050129, end: 20050206
  61. FERRLECIT [Concomitant]
     Active Substance: SODIUM FERRIC GLUCONATE COMPLEX
     Dosage: UNK
     Route: 042
     Dates: start: 20050225, end: 20050303
  62. DIGITOXIN [Concomitant]
     Active Substance: DIGITOXIN
     Dosage: UNK
     Route: 065
     Dates: start: 20050126
  63. DIGITOXIN [Concomitant]
     Active Substance: DIGITOXIN
     Dosage: UNK
     Route: 065
     Dates: start: 20050202
  64. LEVOFLOXACIN [Concomitant]
     Active Substance: LEVOFLOXACIN
     Indication: Small intestinal perforation
     Dosage: DOSAGE TEXT: DOSE: 2X500MG
     Route: 042
     Dates: start: 20050224, end: 20050303
  65. CEFOTAXIME [Concomitant]
     Active Substance: CEFOTAXIME SODIUM
     Dosage: UNK
     Route: 065
     Dates: start: 20050126
  66. Tutofusin [Concomitant]
     Dosage: UNK
     Route: 065
     Dates: start: 20050126
  67. FENOTEROL HYDROBROMIDE\IPRATROPIUM BROMIDE [Concomitant]
     Active Substance: FENOTEROL HYDROBROMIDE\IPRATROPIUM BROMIDE
     Indication: Dyspnoea
     Dosage: DOSAGE TEXT: DOSE: 4X2 ROA-RESPIRATORY (INHALATION), DOSAGE FORM: PRESSURISED INHALATION
     Route: 065
     Dates: start: 20050201, end: 20050206
  68. FOLIC ACID [Concomitant]
     Active Substance: FOLIC ACID
     Dosage: AT UNSPECIFIED DOSE ONCE DAILY
     Route: 042
     Dates: start: 20050226, end: 20050303
  69. LINEZOLID [Concomitant]
     Active Substance: LINEZOLID
     Dosage: UNK
     Route: 065
     Dates: start: 20050304
  70. METRONIDAZOLE [Concomitant]
     Active Substance: METRONIDAZOLE
     Indication: Small intestinal perforation
     Dosage: UNK
     Route: 042
     Dates: start: 20050126
  71. METRONIDAZOLE [Concomitant]
     Active Substance: METRONIDAZOLE
     Dosage: 1 G (GRAM) OCNE DAILY
     Route: 042
     Dates: start: 20050224, end: 20050303
  72. PROPOFOL [Concomitant]
     Active Substance: PROPOFOL
     Dosage: UNK
     Route: 065
     Dates: start: 20050126
  73. CLEMASTINE FUMARATE [Concomitant]
     Active Substance: CLEMASTINE FUMARATE
     Indication: Pruritus
     Dosage: UNK
     Route: 042
     Dates: start: 20050303, end: 20050303
  74. VERAPAMIL [Concomitant]
     Active Substance: VERAPAMIL HYDROCHLORIDE
     Dosage: UNK
     Route: 065
     Dates: start: 20050127
  75. RANITIDINE [Concomitant]
     Active Substance: RANITIDINE
     Dosage: UNK
     Route: 065
     Dates: start: 20050126
  76. KONAKION [Concomitant]
     Active Substance: PHYTONADIONE
     Dosage: DOSAGE TEXT: DOSE: 2X10
     Route: 042
     Dates: start: 20050207, end: 20050207
  77. Dormicum [Concomitant]
     Dosage: UNK
     Route: 065
     Dates: start: 20050128

REACTIONS (6)
  - Dermatitis bullous [Fatal]
  - Toxic epidermal necrolysis [Fatal]
  - Urticaria [Fatal]
  - Epidermolysis [Fatal]
  - Stevens-Johnson syndrome [Fatal]
  - Rash [Fatal]

NARRATIVE: CASE EVENT DATE: 20050223
